FAERS Safety Report 24637532 (Version 1)
Quarter: 2024Q4

REPORT INFORMATION
  Report Type: Report from Study
  Country: US (occurrence: US)
  Receive Date: 20241119
  Receipt Date: 20241119
  Transmission Date: 20250114
  Serious: Yes (Other)
  Sender: TAIHO ONCOLOGY INC
  Company Number: US-TAIHOP-2024-010449

PATIENT
  Age: 73 Year
  Sex: Female

DRUGS (4)
  1. INQOVI [Suspect]
     Active Substance: CEDAZURIDINE\DECITABINE
     Indication: Product used for unknown indication
     Dosage: 135 MG (DECITABINE 35 MG + CEDAZURIDINE 100 MG) ON DAYS 1-5 OF A 28-DAY CYCLE; CYCLE UNKNOWN
     Route: 048
     Dates: start: 20240620
  2. DEFERASIROX [Concomitant]
     Active Substance: DEFERASIROX
     Indication: Product used for unknown indication
  3. DICLOFENAC [Concomitant]
     Active Substance: DICLOFENAC
     Indication: Product used for unknown indication
  4. ELIQUIS [Concomitant]
     Active Substance: APIXABAN
     Indication: Product used for unknown indication

REACTIONS (4)
  - Atrial fibrillation [Unknown]
  - Anaemia [Unknown]
  - Liver function test abnormal [Unknown]
  - Thrombocytopenia [Unknown]
